FAERS Safety Report 22135775 (Version 1)
Quarter: 2023Q1

REPORT INFORMATION
  Report Type: Spontaneous
  Country: US (occurrence: US)
  Receive Date: 20230324
  Receipt Date: 20230324
  Transmission Date: 20230418
  Serious: Yes (Death)
  Sender: FDA-Public Use
  Company Number: US-drreddys-LIT/USA/23/0162940

PATIENT
  Age: 34 Year
  Sex: Male

DRUGS (15)
  1. DOXORUBICIN [Suspect]
     Active Substance: DOXORUBICIN
     Indication: Diffuse large B-cell lymphoma
     Dosage: CYCLE 1-6
  2. BORTEZOMIB [Suspect]
     Active Substance: BORTEZOMIB
     Indication: Diffuse large B-cell lymphoma
     Dosage: CYCLE 1
  3. BORTEZOMIB [Suspect]
     Active Substance: BORTEZOMIB
     Dosage: FOLLOWED BY 2.1MG
  4. BORTEZOMIB [Suspect]
     Active Substance: BORTEZOMIB
     Dosage: CYCLE 2
  5. VINCRISTINE [Suspect]
     Active Substance: VINCRISTINE
     Indication: Diffuse large B-cell lymphoma
     Dosage: CYCLE 1-6
  6. ETOPOSIDE [Suspect]
     Active Substance: ETOPOSIDE
     Indication: Diffuse large B-cell lymphoma
     Dosage: CYCLE 1-6
  7. CYCLOPHOSPHAMIDE [Suspect]
     Active Substance: CYCLOPHOSPHAMIDE
     Indication: Diffuse large B-cell lymphoma
     Dosage: CYCLE ONE
  8. CYCLOPHOSPHAMIDE [Suspect]
     Active Substance: CYCLOPHOSPHAMIDE
     Dosage: CYCLE 2?6
  9. DARATUMUMAB [Suspect]
     Active Substance: DARATUMUMAB
     Indication: Diffuse large B-cell lymphoma
     Dosage: CYCLE ONE ON DAY 1
  10. DARATUMUMAB [Suspect]
     Active Substance: DARATUMUMAB
     Dosage: CYCLE 2-5 ON DAY 1 AND DAY 5
  11. METHOTREXATE [Suspect]
     Active Substance: METHOTREXATE
     Indication: Diffuse large B-cell lymphoma
     Dosage: CYCLE 1-6
     Route: 037
  12. OXALIPLATIN [Suspect]
     Active Substance: OXALIPLATIN
     Indication: Diffuse large B-cell lymphoma
     Dosage: CYCLE 1
  13. OXALIPLATIN [Suspect]
     Active Substance: OXALIPLATIN
     Dosage: CYCLE 2
  14. CYTARABINE [Suspect]
     Active Substance: CYTARABINE
     Indication: Diffuse large B-cell lymphoma
     Dosage: CYCLE 1 ON DAY 1 AND DAY 2
  15. CYTARABINE [Suspect]
     Active Substance: CYTARABINE
     Dosage: CYCLE 2 ON DAY 1 AND DAY 2

REACTIONS (4)
  - Diffuse large B-cell lymphoma recurrent [Fatal]
  - Non-Hodgkin^s lymphoma [Fatal]
  - Drug ineffective [Fatal]
  - Product use in unapproved indication [Unknown]
